FAERS Safety Report 22153446 (Version 2)
Quarter: 2023Q2

REPORT INFORMATION
  Report Type: Report from Study
  Country: US (occurrence: US)
  Receive Date: 20230329
  Receipt Date: 20230419
  Transmission Date: 20230722
  Serious: Yes (Other)
  Sender: FDA-Public Use
  Company Number: US-ABBVIE-4706925

PATIENT
  Age: 34 Year
  Sex: Male
  Weight: 99.79 kg

DRUGS (4)
  1. SKYRIZI [Suspect]
     Active Substance: RISANKIZUMAB-RZAA
     Indication: Psoriatic arthropathy
     Dosage: FREQUENCY TEXT: DOSE 2, STRENGTH: 150 MILLIGRAM
     Route: 058
     Dates: start: 20220728, end: 20220728
  2. SKYRIZI [Suspect]
     Active Substance: RISANKIZUMAB-RZAA
     Indication: Psoriasis
     Dosage: FREQUENCY TEXT: DOSE 1, STRENGTH: 150 MILLIGRAM
     Route: 058
     Dates: start: 20220630, end: 20220630
  3. SKYRIZI [Suspect]
     Active Substance: RISANKIZUMAB-RZAA
     Dosage: STRENGTH: 150 MILLIGRAM
     Route: 058
     Dates: start: 20221020, end: 20230112
  4. SKYRIZI [Suspect]
     Active Substance: RISANKIZUMAB-RZAA
     Dosage: START DATE- 2023
     Route: 058

REACTIONS (7)
  - Immune-mediated myositis [Recovered/Resolved]
  - Food poisoning [Recovered/Resolved]
  - Immune-mediated myositis [Unknown]
  - Dizziness [Recovered/Resolved]
  - Vertigo [Unknown]
  - Blood creatine phosphokinase abnormal [Recovering/Resolving]
  - Hyperhidrosis [Recovered/Resolved]

NARRATIVE: CASE EVENT DATE: 20220909
